FAERS Safety Report 12462029 (Version 1)
Quarter: 2016Q2

REPORT INFORMATION
  Report Type: Spontaneous
  Country: PL (occurrence: PL)
  Receive Date: 20160613
  Receipt Date: 20160613
  Transmission Date: 20160815
  Serious: Yes (Other)
  Sender: FDA-Public Use
  Company Number: PL-ALLERGAN-1659842US

PATIENT
  Age: 27 Year
  Sex: Female

DRUGS (1)
  1. LEVOSERT [Suspect]
     Active Substance: LEVONORGESTREL
     Indication: CONTRACEPTION
     Dosage: 52 MG, UNK
     Route: 015
     Dates: start: 20160518

REACTIONS (2)
  - Device dislocation [Unknown]
  - Device expulsion [Unknown]

NARRATIVE: CASE EVENT DATE: 20160601
